FAERS Safety Report 8129411-8 (Version None)
Quarter: 2012Q1

REPORT INFORMATION
  Report Type: 
  Country: None (occurrence: None)
  Receive Date: 20120103
  Receipt Date: 20110902
  Transmission Date: 20120608
  Serious: No
  Sender: FDA-Public Use
  Company Number: AE-2011-001307

PATIENT
  Age: 55 Year
  Sex: Male
  Weight: 89.8122 kg

DRUGS (11)
  1. INCIVEK [Suspect]
     Dosage: 2250 MG (750 MG, 1 IN 8 HR), ORAL
     Route: 048
     Dates: start: 20110813
  2. PLAVIX [Concomitant]
  3. NEXIUM (ESOEMPRAZOLE MAGNESIUM) [Concomitant]
  4. FLEXERIL [Concomitant]
  5. COPEGUS [Concomitant]
  6. LISINOPRIL [Concomitant]
  7. NORVASC [Concomitant]
  8. PEGASYS [Concomitant]
  9. REPREXAIN (HYDROCODONE W/ IBUPROFEN) [Concomitant]
  10. MINERAL OIL (MINERAL OIL EMULSION) [Concomitant]
  11. PREPARATION H (PREPARATION H /ISR/) [Concomitant]

REACTIONS (2)
  - PRURITUS GENERALISED [None]
  - ANGER [None]
